FAERS Safety Report 11718610 (Version 1)
Quarter: 2015Q4

REPORT INFORMATION
  Report Type: Spontaneous
  Country: SE (occurrence: SE)
  Receive Date: 20151109
  Receipt Date: 20151109
  Transmission Date: 20160304
  Serious: Yes (Other)
  Sender: FDA-Public Use
  Company Number: SE-TAKEDA-2015TUS015262

PATIENT
  Sex: Female

DRUGS (3)
  1. PROGYNON [Concomitant]
     Indication: PRODUCT USED FOR UNKNOWN INDICATION
     Route: 065
  2. BRINTELLIX [Suspect]
     Active Substance: VORTIOXETINE HYDROBROMIDE
     Dosage: 15 MG, QD
     Route: 048
  3. BRINTELLIX [Suspect]
     Active Substance: VORTIOXETINE HYDROBROMIDE
     Indication: BIPOLAR DISORDER
     Dosage: 10 MG, QD
     Route: 048

REACTIONS (7)
  - Anxiety [Unknown]
  - Product use issue [Unknown]
  - Tearfulness [Unknown]
  - Vulvovaginal pruritus [Unknown]
  - Suicidal ideation [Unknown]
  - Hypomania [Unknown]
  - Vaginal discharge [Unknown]
